FAERS Safety Report 12745398 (Version 6)
Quarter: 2017Q1

REPORT INFORMATION
  Report Type: Spontaneous
  Country: IT (occurrence: IT)
  Receive Date: 20160915
  Receipt Date: 20170216
  Transmission Date: 20170428
  Serious: Yes (Hospitalization, Other)
  Sender: FDA-Public Use
  Company Number: IT-TEVA-692240ACC

PATIENT
  Age: 32 Year
  Sex: Male

DRUGS (10)
  1. QUETIAPINE. [Suspect]
     Active Substance: QUETIAPINE
     Route: 065
     Dates: start: 20160721, end: 20160722
  2. ETILTOX - 200 MG COMPRESSE [Concomitant]
     Indication: PRODUCT USED FOR UNKNOWN INDICATION
     Route: 048
  3. DEPAKIN - SANOFI S.P.A. [Suspect]
     Active Substance: VALPROATE SODIUM
     Dosage: 3 DOSAGE FORMS DAILY;
     Route: 048
     Dates: start: 20160721, end: 20160722
  4. KEPPRA [Suspect]
     Active Substance: LEVETIRACETAM
     Dosage: 3000 MILLIGRAM DAILY;
     Route: 048
     Dates: start: 20160721, end: 20160722
  5. DEPAKIN - SANOFI S.P.A. [Suspect]
     Active Substance: VALPROATE SODIUM
     Indication: DRUG ABUSE
     Dosage: 2 DOSAGE FORMS DAILY;
     Route: 048
     Dates: start: 20160721, end: 20160722
  6. KEPPRA [Suspect]
     Active Substance: LEVETIRACETAM
     Dosage: 60 DOSAGE FORMS DAILY;
     Route: 048
  7. NOZINAN - SANOFI S.P.A. [Suspect]
     Active Substance: LEVOMEPROMAZINE MALEATE
     Indication: DRUG ABUSE
     Route: 048
     Dates: start: 20160721, end: 20160721
  8. QUETIAPINE. [Suspect]
     Active Substance: QUETIAPINE
     Indication: DRUG ABUSE
     Dosage: 600 MILLIGRAM DAILY;
     Route: 065
     Dates: start: 20160721, end: 20160722
  9. KEPPRA [Suspect]
     Active Substance: LEVETIRACETAM
     Indication: DRUG ABUSE
     Dosage: 1500 MILLIGRAM DAILY;
     Route: 048
     Dates: start: 20160721, end: 20160722
  10. KEPPRA [Suspect]
     Active Substance: LEVETIRACETAM
     Dosage: 1 DOSAGE FORMS DAILY;
     Route: 048

REACTIONS (3)
  - Drug abuse [Unknown]
  - Dependence [Unknown]
  - Bradyphrenia [Unknown]

NARRATIVE: CASE EVENT DATE: 20160722
